FAERS Safety Report 7798527-8 (Version None)
Quarter: 2011Q4

REPORT INFORMATION
  Report Type: 
  Country: None (occurrence: None)
  Receive Date: 20111005
  Receipt Date: 20110929
  Transmission Date: 20120403
  Serious: Yes (Hospitalization)
  Sender: FDA-Public Use
  Company Number: US-AMGEN-USASP2011042806

PATIENT
  Sex: Female

DRUGS (3)
  1. ENBREL [Suspect]
     Indication: PSORIATIC ARTHROPATHY
  2. ENBREL [Suspect]
     Indication: RHEUMATOID ARTHRITIS
     Dosage: 50 MG, QWK
     Dates: start: 20040901
  3. ENBREL [Suspect]
     Indication: PSORIASIS

REACTIONS (9)
  - RHABDOMYOLYSIS [None]
  - CHEST PAIN [None]
  - MYOPATHY [None]
  - CATARACT [None]
  - PAIN [None]
  - OEDEMA PERIPHERAL [None]
  - MUSCLE ATROPHY [None]
  - CARDIAC DISORDER [None]
  - JOINT ARTHROPLASTY [None]
